FAERS Safety Report 8941356 (Version 2)
Quarter: 2013Q1

REPORT INFORMATION
  Report Type: Report from Study
  Country: GB (occurrence: GB)
  Receive Date: 20121203
  Receipt Date: 20130202
  Transmission Date: 20140127
  Serious: Yes (Hospitalization)
  Sender: FDA-Public Use
  Company Number: GB-US-EMD SERONO, INC.-7178468

PATIENT
  Age: 43 None
  Sex: Male

DRUGS (1)
  1. REBIF [Suspect]
     Indication: PRODUCT USED FOR UNKNOWN INDICATION
     Route: 058
     Dates: start: 20111207

REACTIONS (3)
  - Localised infection [Not Recovered/Not Resolved]
  - Multiple sclerosis relapse [Unknown]
  - Drug dose omission [Unknown]
